FAERS Safety Report 19798615 (Version 2)
Quarter: 2024Q1

REPORT INFORMATION
  Report Type: Spontaneous
  Country: AR (occurrence: AR)
  Receive Date: 20210907
  Receipt Date: 20240209
  Transmission Date: 20240410
  Serious: Yes (Other)
  Sender: FDA-Public Use
  Company Number: AR-PFIZER INC-202101117054

PATIENT
  Age: 72 Year
  Sex: Female

DRUGS (2)
  1. IBRANCE [Suspect]
     Active Substance: PALBOCICLIB
     Indication: Breast cancer metastatic
     Dosage: 125 MG, CYCLIC (DAILY SCHEME 3X1)
     Dates: start: 20210225
  2. FULVESTRANT [Concomitant]
     Active Substance: FULVESTRANT

REACTIONS (2)
  - Cataract [Not Recovered/Not Resolved]
  - Bone deformity [Not Recovered/Not Resolved]

NARRATIVE: CASE EVENT DATE: 20210801
